FAERS Safety Report 9212156 (Version 1)
Quarter: 2013Q2

REPORT INFORMATION
  Report Type: Spontaneous
  Country: US (occurrence: US)
  Receive Date: 20130404
  Receipt Date: 20130404
  Transmission Date: 20140414
  Serious: No
  Sender: FDA-Public Use
  Company Number: US-AMGEN-USASP2013019890

PATIENT
  Age: 32 Year
  Sex: Female
  Weight: 109.75 kg

DRUGS (9)
  1. ENBREL [Suspect]
     Indication: PRODUCT USED FOR UNKNOWN INDICATION
     Dosage: 50 MG, QWK
     Dates: start: 20130314
  2. PHENERGAN                          /00033001/ [Concomitant]
     Dosage: 25 MG, UNK
  3. XANAX [Concomitant]
     Dosage: 2 MG, UNK
  4. AMBIEN [Concomitant]
     Dosage: 5 MG, UNK
  5. WELLBUTRIN [Concomitant]
     Dosage: 75 MG, UNK
  6. FENTANYL CIT [Concomitant]
     Dosage: 1500 MUG, UNK
  7. PREDNISONE [Concomitant]
     Dosage: 10 MG, UNK
  8. DILAUDID [Concomitant]
     Dosage: 2 MG, UNK
  9. MORPHINE SULFATE [Concomitant]
     Dosage: 80 MG, UNK

REACTIONS (4)
  - Migraine [Recovered/Resolved]
  - Fatigue [Recovered/Resolved]
  - Headache [Unknown]
  - Injection site pain [Recovered/Resolved]
